APPROVED DRUG PRODUCT: AMIPAQUE
Active Ingredient: METRIZAMIDE
Strength: 6.75GM/VIAL
Dosage Form/Route: INJECTABLE;INJECTION
Application: N017982 | Product #002
Applicant: GE HEALTHCARE
Approved: Approved Prior to Jan 1, 1982 | RLD: No | RS: No | Type: DISCN